FAERS Safety Report 19017392 (Version 1)
Quarter: 2021Q1

REPORT INFORMATION
  Report Type: Spontaneous
  Country: US (occurrence: US)
  Receive Date: 20210316
  Receipt Date: 20210316
  Transmission Date: 20210420
  Serious: Yes (Hospitalization)
  Sender: FDA-Public Use
  Company Number: None

PATIENT
  Age: 63 Year
  Sex: Male

DRUGS (7)
  1. TEMAZEPAM. [Concomitant]
     Active Substance: TEMAZEPAM
     Dates: start: 20210219
  2. NITROFUR MAC [Concomitant]
     Active Substance: NITROFURANTOIN
     Dates: start: 20210114
  3. REBIF [Suspect]
     Active Substance: INTERFERON BETA-1A
     Indication: LIPOPROTEIN ABNORMAL
     Route: 058
     Dates: start: 20200221
  4. STIMULANT [Concomitant]
     Active Substance: UNSPECIFIED INGREDIENT
     Dates: start: 20210202
  5. LEVOTHYROXI N [Concomitant]
     Dates: start: 20210209
  6. CEPHALEXIN. [Concomitant]
     Active Substance: CEPHALEXIN
     Dates: start: 20210310
  7. REBIF [Suspect]
     Active Substance: INTERFERON BETA-1A
     Indication: ESSENTIAL HYPERTENSION
     Route: 058
     Dates: start: 20200221

REACTIONS (1)
  - Therapy interrupted [None]

NARRATIVE: CASE EVENT DATE: 20210315
